FAERS Safety Report 10885311 (Version 1)
Quarter: 2015Q1

REPORT INFORMATION
  Report Type: Spontaneous
  Country: US (occurrence: None)
  Receive Date: 20150227
  Receipt Date: 20150227
  Transmission Date: 20150721
  Serious: Yes (Other)
  Sender: FDA-Public Use
  Company Number: 2015VER00091

PATIENT
  Age: 14 Year
  Sex: Male

DRUGS (2)
  1. MYORISAN [Suspect]
     Active Substance: ISOTRETINOIN
     Indication: ACNE
     Route: 048
     Dates: start: 201412, end: 201501
  2. MYORISAN [Suspect]
     Active Substance: ISOTRETINOIN
     Indication: ACNE
     Route: 048
     Dates: start: 201501, end: 201501

REACTIONS (9)
  - Depression [None]
  - Suicidal ideation [None]
  - Epistaxis [None]
  - Anhedonia [None]
  - Blood triglycerides increased [None]
  - Mood altered [None]
  - Arthralgia [None]
  - Unevaluable event [None]
  - Myalgia [None]

NARRATIVE: CASE EVENT DATE: 20141204
